FAERS Safety Report 23597020 (Version 3)
Quarter: 2024Q1

REPORT INFORMATION
  Report Type: Spontaneous
  Country: GB (occurrence: GB)
  Receive Date: 20240305
  Receipt Date: 20240322
  Transmission Date: 20240409
  Serious: Yes (Hospitalization, Other)
  Sender: FDA-Public Use
  Company Number: GB-MYLANLABS-2023M1116094

PATIENT
  Age: 45 Year
  Sex: Male

DRUGS (1)
  1. CLOZARIL [Suspect]
     Active Substance: CLOZAPINE
     Indication: Schizophrenia
     Dosage: UNK
     Route: 048
     Dates: start: 20120110, end: 20240224

REACTIONS (9)
  - Hospitalisation [Unknown]
  - Neoplasm malignant [Unknown]
  - Diabetes mellitus [Unknown]
  - Anaemia [Recovering/Resolving]
  - Gastrointestinal wall thickening [Unknown]
  - Abdominal discomfort [Unknown]
  - Red blood cell count decreased [Unknown]
  - Eosinophil count decreased [Not Recovered/Not Resolved]
  - Therapy interrupted [Unknown]

NARRATIVE: CASE EVENT DATE: 20231030
